FAERS Safety Report 4522766-2 (Version None)
Quarter: 2004Q4

REPORT INFORMATION
  Report Type: 
  Country: None (occurrence: None)
  Receive Date: 20041207
  Receipt Date: 20041124
  Transmission Date: 20050328
  Serious: Yes (Other)
  Sender: FDA-Public Use
  Company Number: 2004-UK-01258UK

PATIENT
  Age: 69 Year
  Sex: Male

DRUGS (7)
  1. SPIRIVA [Suspect]
     Indication: CHRONIC OBSTRUCTIVE AIRWAYS DISEASE
     Dosage: 18 MCG (18 MCG)  IH
     Route: 055
     Dates: start: 20041103
  2. SALBUTAMOL (SALBUTAMOL) [Concomitant]
  3. ........ [Concomitant]
  4. BECLOMETHASONE DIPROPIONATE [Concomitant]
  5. FELODIPINE [Concomitant]
  6. ATORVASTATIN (ATORVASTATIN) [Concomitant]
  7. FINASTERIDE [Concomitant]

REACTIONS (2)
  - LUNG DISORDER [None]
  - PALPITATIONS [None]
